FAERS Safety Report 12704804 (Version 2)
Quarter: 2016Q4

REPORT INFORMATION
  Report Type: Spontaneous
  Country: US (occurrence: US)
  Receive Date: 20160831
  Receipt Date: 20161011
  Transmission Date: 20170207
  Serious: Yes (Hospitalization, Other)
  Sender: FDA-Public Use
  Company Number: US-SHIRE-US201611586

PATIENT
  Age: 3 Year
  Sex: Male
  Weight: 24.3 kg

DRUGS (17)
  1. NEXIUM [Concomitant]
     Active Substance: ESOMEPRAZOLE MAGNESIUM
     Indication: PRODUCT USED FOR UNKNOWN INDICATION
     Dosage: 10 MG POWDER FOR RECONSTITUTION), 1X/DAY:QD
     Route: 048
  2. ALBUTEROL HFA [Concomitant]
     Active Substance: ALBUTEROL SULFATE
     Indication: WHEEZING
     Dosage: 90MCG/INH INHALE 2 PUFFS BY MOUTH USE WITH VIA SPACER , AS REQ^D (EVERY 4 HOURS)
  3. OXYCODONE [Concomitant]
     Active Substance: OXYCODONE
     Indication: PAIN
     Dosage: 2 MG (5MG/5ML) TAKE 2MG (2ML), AS REQ^D (EVERY 6 HOURS)
     Route: 048
  4. TYLENOL [Concomitant]
     Active Substance: ACETAMINOPHEN
     Indication: PAIN
  5. LACTULOSE. [Concomitant]
     Active Substance: LACTULOSE
     Indication: PRODUCT USED FOR UNKNOWN INDICATION
     Dosage: 10 ML (10G/15ML) TAKE 6.6667GM (IS 10ML), 2X/DAY:BID FOR 7 DAYS
     Route: 048
  6. TYLENOL [Concomitant]
     Active Substance: ACETAMINOPHEN
     Indication: PREMEDICATION
     Dosage: 240 MG, AS REQ^D (EVERY 4 HOURS)
     Route: 048
  7. POLY-VI-SOL WITH IRON [Concomitant]
     Indication: PRODUCT USED FOR UNKNOWN INDICATION
     Dosage: 1 ML, 1X/DAY:QD
     Route: 048
  8. FLOVENT HFA [Concomitant]
     Active Substance: FLUTICASONE PROPIONATE
     Indication: PRODUCT USED FOR UNKNOWN INDICATION
     Dosage: 110 MCG/INH 2 PUFFS INCREASE TO 4 PUFFS INHALED TWICE IN THE YELLOW ZONE USE WITH SPACER, 2X/DAY:BID
     Route: 055
  9. HYDROCORTISONE. [Concomitant]
     Active Substance: HYDROCORTISONE
     Indication: PRODUCT USED FOR UNKNOWN INDICATION
     Dosage: 2.5 % APPLY TO MILD AREAS ON BODY AND AREAS ON FACE, 2X/DAY:BID
     Route: 061
  10. IBUPROFEN. [Concomitant]
     Active Substance: IBUPROFEN
     Indication: PRODUCT USED FOR UNKNOWN INDICATION
     Dosage: 230 MG (100MG/5ML), 4X/DAY:QID (EVERY 6 HOURS)
     Route: 048
  11. KEFLEX [Concomitant]
     Active Substance: CEPHALEXIN
     Indication: PRODUCT USED FOR UNKNOWN INDICATION
     Dosage: 500 MG (250 MG/5ML) 500 MG (TAKE 10 ML), 3X/DAY:TID
     Route: 048
  12. FLONASE [Concomitant]
     Active Substance: FLUTICASONE PROPIONATE
     Indication: PRODUCT USED FOR UNKNOWN INDICATION
     Dosage: 0.05 MG (1 SPRAY EACH NOSTRIL), 1X/DAY:QD
     Route: 045
  13. ALBUTEROL HFA [Concomitant]
     Active Substance: ALBUTEROL SULFATE
     Indication: COUGH
  14. ELAPRASE [Suspect]
     Active Substance: IDURSULFASE
     Indication: MUCOPOLYSACCHARIDOSIS II
     Dosage: 12 MG, 1X/WEEK (TUESDAYS)
     Route: 041
     Dates: start: 20141214
  15. TYLENOL [Concomitant]
     Active Substance: ACETAMINOPHEN
     Indication: PYREXIA
  16. FERROUS SULFATE. [Concomitant]
     Active Substance: FERROUS SULFATE
     Indication: PRODUCT USED FOR UNKNOWN INDICATION
     Dosage: 60 MG (75MG/1ML, 15 MG ELEMAENTAL IRON), 1X/DAY:QD
     Route: 048
  17. TYLENOL [Concomitant]
     Active Substance: ACETAMINOPHEN
     Indication: NONSPECIFIC REACTION

REACTIONS (16)
  - Dyspnoea [Recovered/Resolved]
  - Auricular swelling [Recovered/Resolved]
  - Respiratory distress [Recovered/Resolved]
  - Oedema peripheral [Recovered/Resolved]
  - Stridor [Recovered/Resolved]
  - Atrioventricular block second degree [Unknown]
  - Lip swelling [Recovered/Resolved]
  - Mouth swelling [Recovered/Resolved]
  - Thrombosis in device [Unknown]
  - Infusion related reaction [Recovered/Resolved]
  - Pyrexia [Recovered/Resolved]
  - Localised oedema [Recovered/Resolved]
  - Pruritus [Recovered/Resolved]
  - Respiratory syncytial virus bronchiolitis [Unknown]
  - Swollen tongue [Recovered/Resolved]
  - Sleep apnoea syndrome [Unknown]

NARRATIVE: CASE EVENT DATE: 20160806
